FAERS Safety Report 5226991-7 (Version None)
Quarter: 2007Q1

REPORT INFORMATION
  Report Type: 
  Country: None (occurrence: None)
  Receive Date: 20070202
  Receipt Date: 20070124
  Transmission Date: 20070707
  Serious: Yes (Other)
  Sender: FDA-Public Use
  Company Number: US-BAYER-200710263BCC

PATIENT
  Age: 37 Year
  Sex: Male
  Weight: 77 kg

DRUGS (3)
  1. NEO-SYN REG STRENGTH 1/2% SPRAY [Suspect]
     Indication: DRUG USE FOR UNKNOWN INDICATION
     Route: 045
     Dates: start: 20070101
  2. PRESCRIPTION NAPROXEN [Suspect]
     Indication: DRUG USE FOR UNKNOWN INDICATION
     Route: 048
     Dates: start: 20070101
  3. SKELAXIN [Concomitant]

REACTIONS (2)
  - ABDOMINAL PAIN [None]
  - HAEMATOCHEZIA [None]
